FAERS Safety Report 9789899 (Version 1)
Quarter: 2013Q4

REPORT INFORMATION
  Report Type: Spontaneous
  Country: US (occurrence: None)
  Receive Date: 20131230
  Receipt Date: 20131230
  Transmission Date: 20140711
  Serious: Yes (Other)
  Sender: FDA-Public Use
  Company Number: None

PATIENT
  Age: 83 Year
  Sex: Female
  Weight: 53.52 kg

DRUGS (7)
  1. DELTASONE [Suspect]
     Indication: POLYMYALGIA RHEUMATICA
     Dosage: 1 TABLET
     Route: 048
     Dates: start: 20131217, end: 20131219
  2. DELTASONE [Suspect]
     Indication: ASTHMA
     Dosage: 1 TABLET
     Route: 048
     Dates: start: 20131217, end: 20131219
  3. CHLORTHALIDONE [Concomitant]
  4. VOLTAREN GEL [Concomitant]
  5. ALBUTEROL [Concomitant]
  6. ACETAMINOPHEN [Concomitant]
  7. CLARITIN [Concomitant]

REACTIONS (4)
  - Blood pressure increased [None]
  - Gastrooesophageal reflux disease [None]
  - Product substitution issue [None]
  - Product quality issue [None]
